FAERS Safety Report 6419310-1 (Version None)
Quarter: 2009Q4

REPORT INFORMATION
  Report Type: 
  Country: None (occurrence: None)
  Receive Date: 20091029
  Receipt Date: 20091015
  Transmission Date: 20100525
  Serious: Yes (Hospitalization, Other)
  Sender: FDA-Public Use
  Company Number: JP-BRISTOL-MYERS SQUIBB COMPANY-14466064

PATIENT
  Age: 44 Year
  Sex: Male

DRUGS (9)
  1. EFAVIRENZ [Suspect]
     Indication: ACQUIRED IMMUNODEFICIENCY SYNDROME
     Dosage: MSD
     Route: 048
     Dates: start: 20070618
  2. EPZICOM [Suspect]
     Indication: HIV INFECTION
     Dosage: TABS TAKEN ON 29JUN2006
     Route: 065
     Dates: start: 20070618
  3. ZITHROMAX [Concomitant]
     Dates: start: 20070522, end: 20090129
  4. ETHAMBUTOL HYDROCHLORIDE [Concomitant]
     Dates: start: 20070321, end: 20080801
  5. ISCOTIN [Concomitant]
     Dates: start: 20070321, end: 20080801
  6. PYRAZINAMIDE [Concomitant]
  7. MYCOBUTIN [Concomitant]
     Dates: start: 20070522, end: 20080801
  8. SULFAMETHOXAZOLE AND TRIMETHOPRIM [Concomitant]
     Dates: start: 20070322
  9. VALGANCICLOVIR HCL [Concomitant]
     Dates: start: 20070911, end: 20080926

REACTIONS (2)
  - IMMUNE RECONSTITUTION SYNDROME [None]
  - TUBERCULOSIS [None]
